FAERS Safety Report 7243146-5 (Version None)
Quarter: 2011Q1

REPORT INFORMATION
  Report Type: 
  Country: None (occurrence: None)
  Receive Date: 20110125
  Receipt Date: 20110111
  Transmission Date: 20110831
  Serious: Yes (Hospitalization, Other)
  Sender: FDA-Public Use
  Company Number: BR-ELI_LILLY_AND_COMPANY-BR201012006450

PATIENT
  Sex: Female
  Weight: 58 kg

DRUGS (5)
  1. FORTEO [Suspect]
     Indication: OSTEOPOROSIS
     Dosage: 20 UG, DAILY (1/D)
     Route: 058
     Dates: start: 20100701
  2. ALOES EXTRACT [Concomitant]
     Indication: DEMENTIA ALZHEIMER'S TYPE
     Dosage: UNK, UNKNOWN
     Route: 065
  3. AAS [Concomitant]
     Indication: HYPERTENSION
     Dosage: UNK, UNKNOWN
     Route: 065
  4. CARDIZEM [Concomitant]
     Indication: HYPERTENSION
     Dosage: UNK, UNKNOWN
     Route: 065
  5. RENITEC /00574902/ [Concomitant]
     Indication: ARRHYTHMIA
     Dosage: UNK, UNKNOWN
     Route: 065

REACTIONS (6)
  - RIB FRACTURE [None]
  - VIRAL INFECTION [None]
  - FALL [None]
  - RESPIRATORY TRACT INFECTION [None]
  - BALANCE DISORDER [None]
  - SECRETION DISCHARGE [None]
